FAERS Safety Report 23581989 (Version 1)
Quarter: 2024Q1

REPORT INFORMATION
  Report Type: Other
  Country: US (occurrence: None)
  Receive Date: 20240229
  Receipt Date: 20240229
  Transmission Date: 20240410
  Serious: Yes (Hospitalization)
  Sender: FDA-Public Use
  Company Number: US-ROCHE-3514912

PATIENT
  Age: 47 Year
  Sex: Male
  Weight: 81.72 kg

DRUGS (9)
  1. OCREVUS [Suspect]
     Active Substance: OCRELIZUMAB
     Indication: Relapsing multiple sclerosis
     Dosage: DATE OF TREATMENT: 19/JAN/2024
     Route: 042
     Dates: start: 202106
  2. BACLOFEN [Concomitant]
     Active Substance: BACLOFEN
  3. PRAVASTATIN [Concomitant]
     Active Substance: PRAVASTATIN
  4. LEVOTHYROXINE [Concomitant]
     Active Substance: LEVOTHYROXINE\LEVOTHYROXINE SODIUM
  5. VALACYCLOVIR [Concomitant]
     Active Substance: VALACYCLOVIR HYDROCHLORIDE
  6. QUETIAPINE [Concomitant]
     Active Substance: QUETIAPINE
  7. LAMOTRIGINE [Concomitant]
     Active Substance: LAMOTRIGINE
  8. CLONAZEPAM [Concomitant]
     Active Substance: CLONAZEPAM
  9. ESCITALOPRAM [Concomitant]
     Active Substance: ESCITALOPRAM OXALATE

REACTIONS (3)
  - Urinary tract infection [Recovered/Resolved]
  - Paraesthesia [Unknown]
  - Balance disorder [Unknown]

NARRATIVE: CASE EVENT DATE: 20220101
